FAERS Safety Report 7008536-4 (Version None)
Quarter: 2010Q3

REPORT INFORMATION
  Report Type: 
  Country: None (occurrence: None)
  Receive Date: 20100922
  Receipt Date: 20100824
  Transmission Date: 20110219
  Serious: No
  Sender: FDA-Public Use
  Company Number: US-PFIZER INC-2010103390

PATIENT
  Sex: Female
  Weight: 61.224 kg

DRUGS (9)
  1. XALATAN [Suspect]
     Indication: GLAUCOMA
     Dosage: 1 GTT, UNK
     Route: 047
     Dates: start: 20100809
  2. XALATAN [Suspect]
     Indication: INTRAOCULAR PRESSURE TEST ABNORMAL
  3. FLURAZEPAM [Suspect]
     Indication: SLEEP DISORDER
     Dosage: 15 MG DAILY
     Route: 048
  4. PRINIVIL [Concomitant]
     Indication: HYPERTENSION
     Dosage: 20 MG DAILY
     Route: 048
  5. TRANDATE [Concomitant]
     Indication: HYPERTENSION
     Dosage: DAILY
     Route: 048
  6. COZAAR [Concomitant]
     Indication: HYPERTENSION
     Dosage: UNK
  7. NORVASC [Concomitant]
     Indication: BLOOD PRESSURE INCREASED
     Dosage: 2.5 MG DAILY
     Route: 048
  8. CALCIUM [Concomitant]
     Dosage: DAILY
     Route: 048
  9. LABETALOL [Concomitant]
     Indication: HYPERTENSION
     Dosage: UNK

REACTIONS (4)
  - CRYING [None]
  - DRUG INEFFECTIVE [None]
  - INSOMNIA [None]
  - POLLAKIURIA [None]
